FAERS Safety Report 16766295 (Version 3)
Quarter: 2019Q3

REPORT INFORMATION
  Report Type: Spontaneous
  Country: US (occurrence: US)
  Receive Date: 20190903
  Receipt Date: 20190910
  Transmission Date: 20191005
  Serious: Yes (Other)
  Sender: FDA-Public Use
  Company Number: US-PFIZER INC-2019375979

PATIENT
  Sex: Female

DRUGS (1)
  1. ARTHROTEC [Suspect]
     Active Substance: DICLOFENAC SODIUM\MISOPROSTOL
     Dosage: UNK

REACTIONS (7)
  - Prolapse [Unknown]
  - Arthropathy [Unknown]
  - Swelling face [Unknown]
  - Lymphadenopathy [Unknown]
  - Glaucoma [Unknown]
  - Fall [Unknown]
  - Arthritis [Unknown]
